FAERS Safety Report 19418701 (Version 3)
Quarter: 2021Q2

REPORT INFORMATION
  Report Type: Spontaneous
  Country: GB (occurrence: GB)
  Receive Date: 20210615
  Receipt Date: 20210628
  Transmission Date: 20210717
  Serious: Yes (Other)
  Sender: FDA-Public Use
  Company Number: GB-TEVA-2021-GB-1922255

PATIENT
  Age: 29 Year
  Sex: Female

DRUGS (4)
  1. SULFAPYRIDINE. [Suspect]
     Active Substance: SULFAPYRIDINE
     Indication: LINEAR IGA DISEASE
     Dosage: INITIAL DOSE UNKNOWN; SIDE EFFECT (VOMITING) APPEARED WHEN THE DOSE EXCEEDED 500MG TWICE A DAY
     Route: 065
  2. DOXYCYCLINE. [Suspect]
     Active Substance: DOXYCYCLINE
     Indication: LINEAR IGA DISEASE
     Dosage: 200 MILLIGRAM DAILY; LONG?TERM
     Route: 065
  3. PREDNISOLONE. [Suspect]
     Active Substance: PREDNISOLONE
     Indication: LINEAR IGA DISEASE
     Dosage: 60 MILLIGRAM DAILY;
     Route: 065
  4. DAPSONE. [Concomitant]
     Active Substance: DAPSONE
     Indication: LINEAR IGA DISEASE
     Dosage: INITIAL DOSE UNKNOWN; MAXIMAL DAILY DOSE OF 125MG
     Route: 065

REACTIONS (6)
  - Weight increased [Unknown]
  - Affective disorder [Unknown]
  - Cataract [Unknown]
  - Myopathy [Unknown]
  - Drug ineffective [Unknown]
  - Vomiting [Unknown]
